FAERS Safety Report 20454847 (Version 2)
Quarter: 2022Q1

REPORT INFORMATION
  Report Type: Spontaneous
  Country: IN (occurrence: IN)
  Receive Date: 20220210
  Receipt Date: 20220310
  Transmission Date: 20220423
  Serious: Yes (Hospitalization, Other)
  Sender: FDA-Public Use
  Company Number: IN-PFIZER INC-202200158395

PATIENT
  Age: 64 Year
  Sex: Female

DRUGS (8)
  1. PALBOCICLIB [Suspect]
     Active Substance: PALBOCICLIB
     Dosage: 125 MG, CYCLIC (ONCE DAILY 21/28 DAYS)
     Route: 048
     Dates: start: 20210225
  2. PALBOCICLIB [Suspect]
     Active Substance: PALBOCICLIB
     Dosage: 100 MG, 1X/DAY
     Route: 048
     Dates: start: 20210727
  3. LETROZOLE [Concomitant]
     Active Substance: LETROZOLE
     Dosage: 2.5 MG, 1X/DAY
  4. DENOSUMAB [Concomitant]
     Active Substance: DENOSUMAB
     Dosage: 120 MG, MONTHLY
     Route: 058
  5. PAN [Concomitant]
     Dosage: BEFORE BREAKFAST
  6. SUCRAL-O [Concomitant]
     Dosage: 1 TSP  BEFORE DINNER X2 WEEKS.
  7. LOOZ [Concomitant]
     Dosage: @ 10 PM
  8. MUCOBENZ [Concomitant]
     Dosage: MOUTH WASH THRICE A DAY AFTER MEALS.

REACTIONS (5)
  - Back pain [Unknown]
  - Gastritis [Unknown]
  - Neoplasm progression [Unknown]
  - Haemoglobin decreased [Unknown]
  - Neutrophil percentage decreased [Unknown]

NARRATIVE: CASE EVENT DATE: 20210505
